FAERS Safety Report 24443906 (Version 2)
Quarter: 2024Q4

REPORT INFORMATION
  Report Type: Report from Study
  Country: US (occurrence: US)
  Receive Date: 20241016
  Receipt Date: 20241017
  Transmission Date: 20250115
  Serious: No
  Sender: ROCHE
  Company Number: US-ROCHE-2522290

PATIENT
  Age: 65 Year
  Sex: Male

DRUGS (7)
  1. RITUXAN [Suspect]
     Active Substance: RITUXIMAB
     Indication: Chronic inflammatory demyelinating polyradiculoneuropathy
     Dosage: 12-16 WEEKS
     Route: 042
  2. RITUXAN [Suspect]
     Active Substance: RITUXIMAB
     Indication: Monoclonal gammopathy
     Dosage: ONCE A WEEK FOR 4 WEEKS, DATE OF TREATMENT: 05/JAN/2020
     Route: 042
  3. RITUXAN [Suspect]
     Active Substance: RITUXIMAB
     Indication: Polyneuropathy
  4. DIAZEPAM [Concomitant]
     Active Substance: DIAZEPAM
     Dosage: TAKE 1 TABLET BY MOUTH 5 MG ONCE FOR 1 DOSE
  5. MINOXIDIL [Concomitant]
     Active Substance: MINOXIDIL
     Dosage: TAKE 1 APPLICATION TOPICALLY DAILY
  6. ROSUVASTATIN CALCIUM [Concomitant]
     Active Substance: ROSUVASTATIN CALCIUM
     Dosage: TAKE 1 TABLET 5 MG BY MOUTH DAILY AT BEDTIME
  7. SERTRALINE HYDROCHLORIDE [Concomitant]
     Active Substance: SERTRALINE HYDROCHLORIDE
     Dosage: TAKE 0.5 TABLETS 23 MG TOTAL BY MOUTH DAILY

REACTIONS (2)
  - Off label use [Unknown]
  - No adverse event [Unknown]
